FAERS Safety Report 17827718 (Version 1)
Quarter: 2020Q2

REPORT INFORMATION
  Report Type: Spontaneous
  Country: US (occurrence: US)
  Receive Date: 20200526
  Receipt Date: 20200526
  Transmission Date: 20200714
  Serious: Yes (Other)
  Sender: FDA-Public Use
  Company Number: None

PATIENT
  Age: 45 Year
  Sex: Female
  Weight: 63 kg

DRUGS (3)
  1. VIMPAT [Concomitant]
     Active Substance: LACOSAMIDE
  2. LAMOTRIGINE TABS 200 MG [Suspect]
     Active Substance: LAMOTRIGINE
     Indication: SEIZURE
     Route: 048
     Dates: start: 20200430, end: 20200522
  3. ONFI [Concomitant]
     Active Substance: CLOBAZAM

REACTIONS (7)
  - Headache [None]
  - Product substitution issue [None]
  - Chills [None]
  - Irritability [None]
  - Formication [None]
  - Epilepsy [None]
  - Lethargy [None]

NARRATIVE: CASE EVENT DATE: 20200430
